FAERS Safety Report 4646091-4 (Version None)
Quarter: 2005Q2

REPORT INFORMATION
  Report Type: 
  Country: None (occurrence: None)
  Receive Date: 20050427
  Receipt Date: 20040920
  Transmission Date: 20051028
  Serious: No
  Sender: FDA-Public Use
  Company Number: US-GLAXOSMITHKLINE-A0526610A

PATIENT
  Age: 2 Year
  Sex: Male

DRUGS (1)
  1. ZOFRAN [Suspect]
     Indication: DRUG USE FOR UNKNOWN INDICATION
     Route: 042
     Dates: start: 20040403

REACTIONS (1)
  - CONSTIPATION [None]
